FAERS Safety Report 6553672-X (Version None)
Quarter: 2010Q1

REPORT INFORMATION
  Report Type: 
  Country: None (occurrence: None)
  Receive Date: 20100127
  Receipt Date: 20100115
  Transmission Date: 20100710
  Serious: Yes (Other)
  Sender: FDA-Public Use
  Company Number: PHHY2009CA54305

PATIENT

DRUGS (1)
  1. CO-DIOVAN T32564+ [Suspect]
     Dosage: 160/25 MG, UNK

REACTIONS (1)
  - HYPERTENSION [None]
